FAERS Safety Report 14413917 (Version 1)
Quarter: 2018Q1

REPORT INFORMATION
  Report Type: Spontaneous
  Country: US (occurrence: US)
  Receive Date: 20180118
  Receipt Date: 20180118
  Transmission Date: 20180509
  Serious: No
  Sender: FDA-Public Use
  Company Number: None

PATIENT
  Age: 51 Year
  Sex: Male

DRUGS (1)
  1. COSENTYX [Suspect]
     Active Substance: SECUKINUMAB
     Indication: RHEUMATOID ARTHRITIS
     Dosage: 300MGS EVERY 4 WEEKS SUBCUTANEOUSLY
     Route: 058
     Dates: start: 20160908

REACTIONS (1)
  - Rash [None]

NARRATIVE: CASE EVENT DATE: 20171219
